FAERS Safety Report 5913571-0 (Version None)
Quarter: 2008Q4

REPORT INFORMATION
  Report Type: 
  Country: None (occurrence: None)
  Receive Date: 20081006
  Receipt Date: 20080922
  Transmission Date: 20090506
  Serious: No
  Sender: FDA-Public Use
  Company Number: US023912

PATIENT
  Age: 51 Year
  Sex: Female
  Weight: 62.5964 kg

DRUGS (11)
  1. FENTORA [Suspect]
     Indication: PAIN
     Dosage: 200 - 400 UG BID BID BUCCAL
     Route: 002
  2. FENTORA [Suspect]
     Indication: PAIN
     Dosage: 600 UG BID BID BUCCAL
     Route: 002
     Dates: start: 20070101, end: 20080101
  3. ACTIQ [Concomitant]
  4. KADIAN [Concomitant]
  5. CELEBREX [Concomitant]
  6. ROBAXIN [Concomitant]
  7. PRILOSEC [Concomitant]
  8. SYNTHROID [Concomitant]
  9. PREMPRO [Concomitant]
  10. XANAX [Concomitant]
  11. ZOFRAN [Concomitant]

REACTIONS (5)
  - MEDICATION ERROR [None]
  - NAUSEA [None]
  - PRODUCT QUALITY ISSUE [None]
  - VOMITING [None]
  - WEIGHT INCREASED [None]
